FAERS Safety Report 21948864 (Version 1)
Quarter: 2023Q1

REPORT INFORMATION
  Report Type: Report from Study
  Country: GB (occurrence: GB)
  Receive Date: 20230203
  Receipt Date: 20230203
  Transmission Date: 20230417
  Serious: Yes (Hospitalization, Other)
  Sender: FDA-Public Use
  Company Number: GB-CELLTRION INC.-2023GB002385

PATIENT

DRUGS (17)
  1. TRASTUZUMAB [Suspect]
     Active Substance: TRASTUZUMAB
     Indication: Breast cancer metastatic
     Dosage: 520 MG, EVERY 1 WEEK 1 CYCLE (CUMULATIVE DOSE TO FIRST REACTION: 25034.285 MG)
     Route: 042
     Dates: start: 20180129, end: 20180129
  2. TRASTUZUMAB [Suspect]
     Active Substance: TRASTUZUMAB
     Dosage: 390 MG, EVERY 3 WEEKS 3 CYCLES (CUMULATIVE DOSE TO FIRST REACTION: 5868.5713 MG)
     Route: 042
     Dates: start: 20180219, end: 20180402
  3. TRASTUZUMAB [Suspect]
     Active Substance: TRASTUZUMAB
     Dosage: 378 MG, EVERY 3 WEEKS (CUMULATIVE DOSE TO FIRST REACTION: 4554.75 MG)
     Route: 042
     Dates: start: 20180423, end: 20180514
  4. DOCETAXEL [Suspect]
     Active Substance: DOCETAXEL
     Indication: Breast cancer metastatic
     Dosage: 120 MG, EVERY 3 WEEKS (CUMULATIVE DOSE TO FIRST REACTION: 1925.7142 MG)
     Route: 042
     Dates: start: 20180129
  5. PERTUZUMAB [Suspect]
     Active Substance: PERTUZUMAB
     Indication: Breast cancer metastatic
     Dosage: 840 MG, EVERY 1 WEEK 1 CYCLE (CUMULATIVE DOSE TO FIRST REACTION: 40440.0 MG)
     Route: 042
     Dates: start: 20180129, end: 20180129
  6. PERTUZUMAB [Suspect]
     Active Substance: PERTUZUMAB
     Dosage: 420 MG, EVERY 3 WEEKS (CUMULATIVE DOSE TO FIRST REACTION: 6320.0 MG)
     Route: 042
     Dates: start: 20180219
  7. ACLIDINIUM BROMIDE [Concomitant]
     Active Substance: ACLIDINIUM BROMIDE
     Indication: Chronic obstructive pulmonary disease
     Dosage: 644 UG, EVERY 1 DAY (FORM: INHALANT)
  8. ACLIDINIUM BROMIDE [Concomitant]
     Active Substance: ACLIDINIUM BROMIDE
     Dosage: 2 DOSES, EVERY 1 DAY
     Dates: start: 20150107
  9. CITALOPRAM [Concomitant]
     Active Substance: CITALOPRAM HYDROBROMIDE
     Dosage: 20 MG, EVERY 1 DAY (CUMULATIVE DOSE TO FIRST REACTION: 76820.836 MG)
     Route: 048
     Dates: start: 20080626
  10. DOCUSATE SODIUM [Concomitant]
     Active Substance: DOCUSATE SODIUM
     Indication: Constipation
     Dosage: 1100 MG, EVERY 1 DAY (CUMULATIVE DOSE TO FIRST REACTION: 404800.0 MG)
     Route: 048
     Dates: start: 20200104
  11. ELOCON [Concomitant]
     Active Substance: MOMETASONE FUROATE
     Dosage: 1 DOSE, 1 AS NECESSARY
     Route: 061
     Dates: start: 20151221
  12. LANSOPRAZOLE [Concomitant]
     Active Substance: LANSOPRAZOLE
     Dosage: 30 MG, EVERY 1 DAY (CUMULATIVE DOSE TO FIRST REACTION: 151230.0 MG)
     Route: 048
     Dates: start: 20050314
  13. ACETAMINOPHEN [Concomitant]
     Active Substance: ACETAMINOPHEN
     Indication: Analgesic therapy
     Dosage: UNK
  14. ACETAMINOPHEN [Concomitant]
     Active Substance: ACETAMINOPHEN
     Dosage: 2000 MG, EVERY 1 DAY (CUMULATIVE DOSE TO FIRST REACTION: 660000.0 MG)
     Route: 048
     Dates: start: 20180205
  15. ALBUTEROL [Concomitant]
     Active Substance: ALBUTEROL
     Indication: Dyspnoea
     Dosage: 1 DOSE, 1 AS NECCESSARY (FORM: INHALATION)
     Dates: start: 20200104
  16. SYMBICORT [Concomitant]
     Active Substance: BUDESONIDE\FORMOTEROL FUMARATE DIHYDRATE
     Dosage: 2 DOSES, EVERY 1 DAY (DOSE: 1 PUFF)
     Route: 045
     Dates: start: 20120918
  17. MINERAL OIL [Concomitant]
     Active Substance: MINERAL OIL
     Indication: Dry skin
     Dosage: 1 DOSE, 1 AS NECESSARY
     Route: 061
     Dates: start: 20180205

REACTIONS (3)
  - Choking [Recovered/Resolved]
  - Presyncope [Recovered/Resolved]
  - Lower respiratory tract infection [Recovered/Resolved]

NARRATIVE: CASE EVENT DATE: 20190101
